FAERS Safety Report 10029117 (Version 2)
Quarter: 2014Q1

REPORT INFORMATION
  Report Type: Spontaneous
  Country: FR (occurrence: FR)
  Receive Date: 20140321
  Receipt Date: 20140327
  Transmission Date: 20141002
  Serious: Yes (Hospitalization, Other)
  Sender: FDA-Public Use
  Company Number: PHHY2014FR031519

PATIENT
  Age: 72 Year
  Sex: Male
  Weight: 44 kg

DRUGS (6)
  1. STALEVO [Suspect]
     Indication: PARKINSON^S DISEASE
     Dosage: 5 DF, QD
  2. REQUIP [Suspect]
     Indication: PARKINSON^S DISEASE
     Dosage: 8 MG, UNK
  3. MODOPAR [Suspect]
     Indication: PARKINSON^S DISEASE
  4. SKENAN [Concomitant]
     Indication: SCIATICA
     Dosage: 10 MG, UNK
  5. ACTISKENAN [Concomitant]
     Indication: SCIATICA
     Dosage: 5 MG, UNK
  6. FORLAX [Concomitant]
     Indication: CONSTIPATION
     Dosage: 10 G, UNK

REACTIONS (15)
  - Clostridium difficile colitis [Unknown]
  - Abdominal pain [Unknown]
  - Diarrhoea [Recovered/Resolved]
  - Condition aggravated [Unknown]
  - Weight decreased [Unknown]
  - Decreased appetite [Unknown]
  - Asthenia [Unknown]
  - Mucous stools [Unknown]
  - Haematochezia [Unknown]
  - Hypothermia [Unknown]
  - Hypotension [Unknown]
  - Renal impairment [Unknown]
  - Colitis [Unknown]
  - Proctitis [Unknown]
  - Ascites [Unknown]
